FAERS Safety Report 9424800 (Version 2)
Quarter: 2013Q4

REPORT INFORMATION
  Report Type: Spontaneous
  Country: US (occurrence: US)
  Receive Date: 20130729
  Receipt Date: 20131010
  Transmission Date: 20140711
  Serious: Yes (Life-Threatening, Congenital Anomaly, Other)
  Sender: FDA-Public Use
  Company Number: US-PFIZER INC-2013154231

PATIENT
  Sex: Female

DRUGS (4)
  1. ZOLOFT [Suspect]
     Indication: PREMENSTRUAL DYSPHORIC DISORDER
     Dosage: 100 MG, 1X/DAY
     Route: 064
     Dates: start: 20040301, end: 200405
  2. SERTRALINE HCL [Suspect]
     Indication: PREMENSTRUAL DYSPHORIC DISORDER
     Dosage: 150 MG, 1X/DAY
     Route: 064
     Dates: start: 200405
  3. DAYQUIL [Concomitant]
     Dosage: UNK
     Route: 064
  4. IBUPROFEN [Concomitant]
     Dosage: UNK
     Route: 064

REACTIONS (6)
  - Maternal exposure during pregnancy [Unknown]
  - Heart disease congenital [Unknown]
  - Congenital anomaly [Unknown]
  - Hypoplastic left heart syndrome [Unknown]
  - Coarctation of the aorta [Unknown]
  - Ventricular septal defect [Unknown]
